FAERS Safety Report 9744473 (Version 1)
Quarter: 2013Q4

REPORT INFORMATION
  Report Type: Spontaneous
  Country: US (occurrence: US)
  Receive Date: 20131210
  Receipt Date: 20131210
  Transmission Date: 20140711
  Serious: Yes (Other)
  Sender: FDA-Public Use
  Company Number: US-ACTAVIS-2013-22375

PATIENT
  Age: 54 Year
  Sex: Female

DRUGS (3)
  1. NICOTINE [Suspect]
     Indication: SMOKING CESSATION THERAPY
     Dosage: 7 MG, FOR 2 WEEKS
     Route: 062
     Dates: start: 201308
  2. NICOTINE [Suspect]
     Dosage: 14 MG, FOR 2 WEEKS
     Route: 062
  3. NICOTINE [Suspect]
     Dosage: 21 MG, FOR 4 WEEKS
     Route: 062

REACTIONS (3)
  - Memory impairment [Unknown]
  - Dependence [Unknown]
  - Road traffic accident [Unknown]
